FAERS Safety Report 9110950 (Version 1)
Quarter: 2013Q1

REPORT INFORMATION
  Report Type: Spontaneous
  Country: US (occurrence: US)
  Receive Date: 20130219
  Receipt Date: 20130219
  Transmission Date: 20140127
  Serious: No
  Sender: FDA-Public Use
  Company Number: US-BRISTOL-MYERS SQUIBB COMPANY-16373797

PATIENT
  Age: 52 Year
  Sex: Female

DRUGS (5)
  1. ORENCIA [Suspect]
     Indication: RHEUMATOID ARTHRITIS
     Dosage: LAST INF:11JAN12;NO OF INF :7;1F67196 MAY11,1G64566 JUN14,1H58545 JUL14,1H58544 JUL14
     Route: 042
     Dates: start: 20110817, end: 20120111
  2. DICLOFENAC [Concomitant]
  3. PREDNISONE [Concomitant]
  4. AMITRIPTYLINE HCL [Concomitant]
  5. LORAZEPAM [Concomitant]

REACTIONS (2)
  - Transaminases increased [Recovering/Resolving]
  - Autoimmune disorder [Unknown]
